FAERS Safety Report 25707686 (Version 1)
Quarter: 2025Q3

REPORT INFORMATION
  Report Type: Spontaneous
  Country: US (occurrence: US)
  Receive Date: 20250820
  Receipt Date: 20250820
  Transmission Date: 20251020
  Serious: Yes (Other)
  Sender: EISAI
  Company Number: US-Eisai-EC-2025-195179

PATIENT
  Age: 70 Year
  Sex: Female

DRUGS (2)
  1. LENVIMA [Suspect]
     Active Substance: LENVATINIB
     Indication: Renal cancer stage IV
     Dates: start: 20250404, end: 20250513
  2. KEYTRUDA [Concomitant]
     Active Substance: PEMBROLIZUMAB
     Indication: Renal cancer stage IV
     Dates: start: 20250423

REACTIONS (2)
  - Electrocardiogram QT prolonged [Recovered/Resolved]
  - Sinus bradycardia [Recovered/Resolved]

NARRATIVE: CASE EVENT DATE: 20250513
